FAERS Safety Report 4530952-0 (Version None)
Quarter: 2004Q4

REPORT INFORMATION
  Report Type: 
  Country: None (occurrence: None)
  Receive Date: 20041217
  Receipt Date: 20041102
  Transmission Date: 20050328
  Serious: Yes (Hospitalization)
  Sender: FDA-Public Use
  Company Number: US-MERCK-0411USA00469

PATIENT
  Age: 94 Year
  Sex: Female

DRUGS (5)
  1. URECHOLINE [Concomitant]
     Route: 048
  2. VIOXX [Suspect]
     Route: 048
     Dates: end: 20040205
  3. TOPROL-XL [Concomitant]
     Route: 065
  4. FAMVIR [Concomitant]
     Route: 065
  5. DILANTIN [Concomitant]
     Route: 065

REACTIONS (6)
  - FALL [None]
  - PRURITUS [None]
  - PUNCTATE KERATITIS [None]
  - SENSATION OF FOREIGN BODY [None]
  - SUBDURAL HAEMATOMA [None]
  - THERAPY NON-RESPONDER [None]
